FAERS Safety Report 4842404-9 (Version None)
Quarter: 2005Q4

REPORT INFORMATION
  Report Type: 
  Country: None (occurrence: None)
  Receive Date: 20051201
  Receipt Date: 20051024
  Transmission Date: 20060501
  Serious: Yes (Death)
  Sender: FDA-Public Use
  Company Number: US-BRISTOL-MYERS SQUIBB COMPANY-13156658

PATIENT
  Age: 36 Year
  Sex: Female

DRUGS (9)
  1. MEGACE [Suspect]
     Indication: CACHEXIA
     Route: 048
     Dates: start: 20050830, end: 20051020
  2. AMITRIPTYLINE HCL [Concomitant]
  3. COREG [Concomitant]
  4. VALTREX [Concomitant]
  5. FUZEON [Concomitant]
  6. LORTAB [Concomitant]
  7. ATAZANAVIR [Concomitant]
  8. LAMIVUDINE [Concomitant]
  9. DAPSONE [Concomitant]

REACTIONS (1)
  - PNEUMOCYSTIS JIROVECI PNEUMONIA [None]
